FAERS Safety Report 13164175 (Version 2)
Quarter: 2017Q3

REPORT INFORMATION
  Report Type: Report from Study
  Country: US (occurrence: US)
  Receive Date: 20170130
  Receipt Date: 20170726
  Transmission Date: 20171127
  Serious: No
  Sender: FDA-Public Use
  Company Number: US-AMGEN-USASL2016151911

PATIENT
  Age: 78 Year
  Sex: Male

DRUGS (3)
  1. DEXAMETHASONE. [Concomitant]
     Active Substance: DEXAMETHASONE
     Dosage: UNK
  2. KYPROLIS [Suspect]
     Active Substance: CARFILZOMIB
     Dosage: UNK, QWK, 3 WEEK ON AND 1 WEEK OFF SCHEDULE
     Route: 065
  3. KYPROLIS [Suspect]
     Active Substance: CARFILZOMIB
     Indication: PLASMA CELL MYELOMA
     Dosage: UNK, Q2WK, 3 WEEK ON AND 1 WEEK OFF SCHEDULE
     Route: 065

REACTIONS (3)
  - Off label use [Unknown]
  - Feeling abnormal [Unknown]
  - Sciatica [Unknown]

NARRATIVE: CASE EVENT DATE: 20161027
